FAERS Safety Report 24431046 (Version 2)
Quarter: 2025Q3

REPORT INFORMATION
  Report Type: Spontaneous
  Country: US (occurrence: US)
  Receive Date: 20241014
  Receipt Date: 20250822
  Transmission Date: 20251020
  Serious: Yes (Other)
  Sender: PADAGIS
  Company Number: US-PADAGIS-2024PAD01591

PATIENT

DRUGS (2)
  1. IMIQUIMOD [Suspect]
     Active Substance: IMIQUIMOD
     Indication: Paget^s disease of the vulva
     Route: 061
  2. FLUOROURACIL [Concomitant]
     Active Substance: FLUOROURACIL
     Indication: Paget^s disease of the vulva
     Route: 061

REACTIONS (3)
  - Therapy partial responder [Unknown]
  - Skin reaction [Recovering/Resolving]
  - Product use in unapproved indication [Unknown]
